FAERS Safety Report 21130025 (Version 1)
Quarter: 2022Q3

REPORT INFORMATION
  Report Type: Spontaneous
  Country: IT (occurrence: IT)
  Receive Date: 20220726
  Receipt Date: 20220726
  Transmission Date: 20221026
  Serious: Yes (Other)
  Sender: FDA-Public Use
  Company Number: None

PATIENT
  Age: 83 Year
  Sex: Male

DRUGS (1)
  1. MVASI [Suspect]
     Active Substance: BEVACIZUMAB-AWWB
     Indication: Age-related macular degeneration
     Dosage: 1.25 MILLIGRAM
     Route: 031
     Dates: start: 20220530, end: 20220530

REACTIONS (3)
  - Uveitis [Unknown]
  - Eye inflammation [Unknown]
  - Visual impairment [Unknown]

NARRATIVE: CASE EVENT DATE: 20220530
